FAERS Safety Report 13526095 (Version 1)
Quarter: 2017Q2

REPORT INFORMATION
  Report Type: Report from Study
  Country: RO (occurrence: RO)
  Receive Date: 20170509
  Receipt Date: 20170509
  Transmission Date: 20170830
  Serious: Yes (Other)
  Sender: FDA-Public Use
  Company Number: RO-ROCHE-1926868

PATIENT

DRUGS (2)
  1. RIBAVIRIN. [Suspect]
     Active Substance: RIBAVIRIN
     Indication: CHRONIC HEPATITIS C
     Dosage: 1000-1200 MG/DAY
     Route: 065
  2. PEG-INTERFERON ALFA 2A [Suspect]
     Active Substance: PEGINTERFERON ALFA-2A
     Indication: CHRONIC HEPATITIS C
     Route: 058

REACTIONS (44)
  - Fatigue [Unknown]
  - Chills [Unknown]
  - Rash [Unknown]
  - Dermatitis [Unknown]
  - Epistaxis [Unknown]
  - Stomatitis [Unknown]
  - Influenza like illness [Unknown]
  - Hidradenitis [Unknown]
  - Anaemia [Unknown]
  - Leukopenia [Unknown]
  - Nausea [Unknown]
  - Paronychia [Unknown]
  - Infection [Unknown]
  - Cough [Unknown]
  - Depression [Unknown]
  - Subcutaneous abscess [Unknown]
  - Urinary tract infection [Unknown]
  - Weight decreased [Unknown]
  - Arthralgia [Unknown]
  - Irritability [Unknown]
  - Pruritus [Unknown]
  - Alopecia [Unknown]
  - Abdominal pain [Unknown]
  - Visual impairment [Unknown]
  - Diarrhoea [Unknown]
  - Cytomegalovirus hepatitis [Unknown]
  - Neutropenia [Unknown]
  - Thrombocytopenia [Unknown]
  - Insomnia [Unknown]
  - Inflammation [Unknown]
  - Disturbance in attention [Unknown]
  - Dysgeusia [Unknown]
  - Herpes zoster [Unknown]
  - Myalgia [Unknown]
  - Dry mouth [Unknown]
  - Headache [Unknown]
  - Pyrexia [Unknown]
  - Decreased appetite [Unknown]
  - Injection site reaction [Unknown]
  - Memory impairment [Unknown]
  - Vomiting [Unknown]
  - Drug resistance [Unknown]
  - Furuncle [Unknown]
  - Respiratory tract infection [Unknown]
